FAERS Safety Report 13176635 (Version 1)
Quarter: 2017Q1

REPORT INFORMATION
  Report Type: Spontaneous
  Country: BR (occurrence: BR)
  Receive Date: 20170201
  Receipt Date: 20170201
  Transmission Date: 20170428
  Serious: Yes (Other)
  Sender: FDA-Public Use
  Company Number: BR-PFIZER INC-2017038240

PATIENT
  Age: 42 Year
  Sex: Female
  Weight: 91 kg

DRUGS (2)
  1. LYRICA [Suspect]
     Active Substance: PREGABALIN
     Indication: FIBROMYALGIA
  2. LYRICA [Suspect]
     Active Substance: PREGABALIN
     Indication: PAIN
     Dosage: UNK, 2X/DAY
     Route: 048
     Dates: start: 201605

REACTIONS (6)
  - Nerve injury [Not Recovered/Not Resolved]
  - Nausea [Unknown]
  - Peripheral swelling [Unknown]
  - Dizziness [Unknown]
  - Carpal tunnel syndrome [Not Recovered/Not Resolved]
  - Vertigo [Unknown]

NARRATIVE: CASE EVENT DATE: 201607
